FAERS Safety Report 8162557-7 (Version None)
Quarter: 2012Q1

REPORT INFORMATION
  Report Type: 
  Country: None (occurrence: None)
  Receive Date: 20120224
  Receipt Date: 20120222
  Transmission Date: 20120608
  Serious: Yes (Other)
  Sender: FDA-Public Use
  Company Number: US-PFIZER INC-2012047510

PATIENT
  Sex: Female

DRUGS (5)
  1. XANAX [Suspect]
     Indication: AGORAPHOBIA
  2. PAXIL [Concomitant]
     Dosage: UNK
  3. KLONOPIN [Concomitant]
     Dosage: UNK
  4. XANAX [Suspect]
     Indication: ANXIETY
  5. XANAX [Suspect]
     Indication: BIPOLAR I DISORDER
     Dosage: 0.5 MG, 3X/DAY
     Route: 048

REACTIONS (2)
  - EMPHYSEMA [None]
  - PANIC ATTACK [None]
